FAERS Safety Report 23439291 (Version 1)
Quarter: 2024Q1

REPORT INFORMATION
  Report Type: Spontaneous
  Country: US (occurrence: None)
  Receive Date: 20240124
  Receipt Date: 20240124
  Transmission Date: 20240410
  Serious: No
  Sender: FDA-Public Use
  Company Number: None

PATIENT
  Age: 19 Year
  Sex: Female

DRUGS (1)
  1. KEPPRA [Suspect]
     Active Substance: LEVETIRACETAM
     Dosage: FREQUENCY : TWICE A DAY;?
     Route: 048
     Dates: start: 20231123, end: 20231124

REACTIONS (1)
  - Irritability [None]

NARRATIVE: CASE EVENT DATE: 20231124
